FAERS Safety Report 9942185 (Version 1)
Quarter: 2014Q1

REPORT INFORMATION
  Report Type: Report from Study
  Country: US (occurrence: US)
  Receive Date: 20140303
  Receipt Date: 20140303
  Transmission Date: 20141002
  Serious: No
  Sender: FDA-Public Use
  Company Number: US-ABBVIE-13P-163-1042635-00

PATIENT
  Age: 60 Year
  Sex: Female

DRUGS (10)
  1. HUMIRA [Suspect]
     Indication: CROHN^S DISEASE
     Route: 058
     Dates: start: 20121219
  2. LANSOPRAZOLE [Concomitant]
     Indication: DYSPEPSIA
     Dosage: 2 TABLETS ONCE A DAY
  3. MESALAMINE [Concomitant]
     Indication: INFLAMMATORY BOWEL DISEASE
     Dosage: 4 CAPSULES THREE TIMES A DAY
  4. OXYCODONE [Concomitant]
     Indication: PAIN
     Dosage: 2 TABLETS AS NEEDED EVERY 6 HOURS
  5. ONDANSETRON [Concomitant]
     Indication: NAUSEA
  6. PANTOPRAZOLE [Concomitant]
     Indication: PRODUCT USED FOR UNKNOWN INDICATION
     Dosage: ONE TABLET 30 MINUTES BEFORE EATING
  7. POTASSIUM [Concomitant]
     Indication: PRODUCT USED FOR UNKNOWN INDICATION
     Dosage: 2 PACKETS ONCE A DAY
  8. PREDNISONE [Concomitant]
     Indication: PRODUCT USED FOR UNKNOWN INDICATION
     Dosage: 4 TABLETS ONCE A DAY
  9. PROPRANOLOL [Concomitant]
     Indication: BLOOD PRESSURE ABNORMAL
  10. METRONIDAZOLE [Concomitant]
     Indication: CROHN^S DISEASE

REACTIONS (2)
  - Haematochezia [Unknown]
  - Inappropriate schedule of drug administration [Unknown]
